FAERS Safety Report 9781460 (Version 1)
Quarter: 2013Q4

REPORT INFORMATION
  Report Type: Spontaneous
  Country: US (occurrence: US)
  Receive Date: 20131224
  Receipt Date: 20131224
  Transmission Date: 20140711
  Serious: Yes (Other)
  Sender: FDA-Public Use
  Company Number: US-BRISTOL-MYERS SQUIBB COMPANY-19908474

PATIENT
  Sex: Male

DRUGS (2)
  1. BYETTA [Suspect]
  2. HUMALOG [Suspect]

REACTIONS (1)
  - Road traffic accident [Unknown]
